FAERS Safety Report 14513224 (Version 1)
Quarter: 2018Q1

REPORT INFORMATION
  Report Type: Spontaneous
  Country: US (occurrence: US)
  Receive Date: 20180209
  Receipt Date: 20180209
  Transmission Date: 20180509
  Serious: No
  Sender: FDA-Public Use
  Company Number: US-ALLERGAN-1723255US

PATIENT
  Sex: Female

DRUGS (1)
  1. RESTASIS [Suspect]
     Active Substance: CYCLOSPORINE
     Indication: DRY EYE

REACTIONS (5)
  - Eye irritation [Unknown]
  - Eye pruritus [Recovered/Resolved]
  - Expired product administered [Unknown]
  - Pain [Recovered/Resolved]
  - Ocular hyperaemia [Unknown]
